FAERS Safety Report 4325677-0 (Version None)
Quarter: 2004Q1

REPORT INFORMATION
  Report Type: 
  Country: None (occurrence: None)
  Receive Date: 20040324
  Receipt Date: 20040310
  Transmission Date: 20041129
  Serious: Yes (Life-Threatening, Hospitalization)
  Sender: FDA-Public Use
  Company Number: US_021088690

PATIENT
  Age: 69 Year
  Sex: Male
  Weight: 60 kg

DRUGS (8)
  1. GEMZAR [Suspect]
     Indication: NON-SMALL CELL LUNG CANCER
     Dosage: 1700 MG WEEK
     Dates: start: 20020717, end: 20020724
  2. ORGADRONE (DEXAMETHASONE SODIUM PHOSPHATE) [Concomitant]
  3. CALSLOT (MANIDIPINE HYDROCHLORIDE) [Concomitant]
  4. DOXAZOSIN MESYLATE [Concomitant]
  5. FAMOTIDINE [Concomitant]
  6. SELBEX (TEPRENONE) [Concomitant]
  7. THEOPHYLLINE [Concomitant]
  8. TERNELIN (TIZANIDINE HYDROCHLORIDE) [Concomitant]

REACTIONS (8)
  - ABDOMINAL PAIN [None]
  - COMPUTERISED TOMOGRAM ABNORMAL [None]
  - DRUG INEFFECTIVE [None]
  - FLATULENCE [None]
  - GASTROINTESTINAL OEDEMA [None]
  - ILEUS [None]
  - INTESTINAL HAEMORRHAGE [None]
  - NECROTISING COLITIS [None]
